FAERS Safety Report 11980857 (Version 1)
Quarter: 2016Q1

REPORT INFORMATION
  Report Type: Spontaneous
  Country: US (occurrence: US)
  Receive Date: 20160129
  Receipt Date: 20160129
  Transmission Date: 20160526
  Serious: No
  Sender: FDA-Public Use
  Company Number: US-ASTRAZENECA-2016SE06706

PATIENT
  Age: 37 Year
  Sex: Female
  Weight: 63.5 kg

DRUGS (2)
  1. NEXIUM [Suspect]
     Active Substance: ESOMEPRAZOLE MAGNESIUM
     Indication: OESOPHAGEAL MOTILITY DISORDER
     Route: 048
     Dates: start: 2006
  2. PRILOSEC OTC [Suspect]
     Active Substance: OMEPRAZOLE MAGNESIUM
     Indication: OESOPHAGEAL MOTILITY DISORDER
     Route: 048
     Dates: start: 2006

REACTIONS (12)
  - Rash [Unknown]
  - Off label use [Unknown]
  - Malaise [Unknown]
  - Gastrooesophageal reflux disease [Unknown]
  - Feeling abnormal [Unknown]
  - Drug ineffective [Unknown]
  - Chest pain [Unknown]
  - Eosinophilic oesophagitis [Unknown]
  - Product use issue [Unknown]
  - Intentional product misuse [Unknown]
  - Headache [Unknown]
  - Dysphagia [Unknown]

NARRATIVE: CASE EVENT DATE: 2006
